FAERS Safety Report 11771959 (Version 4)
Quarter: 2016Q1

REPORT INFORMATION
  Report Type: Report from Study
  Country: DE (occurrence: DE)
  Receive Date: 20151124
  Receipt Date: 20160325
  Transmission Date: 20160525
  Serious: Yes (Death, Life-Threatening, Hospitalization, Other)
  Sender: FDA-Public Use
  Company Number: PHHY2015DE149618

PATIENT
  Age: 56 Year
  Sex: Female
  Weight: 65 kg

DRUGS (3)
  1. AFINITOR [Suspect]
     Active Substance: EVEROLIMUS
     Indication: BREAST CANCER METASTATIC
     Dosage: 10 MG, QD
     Route: 048
     Dates: start: 20150408, end: 20150616
  2. AFINITOR [Suspect]
     Active Substance: EVEROLIMUS
     Dosage: 10 MG, QD
     Route: 048
     Dates: start: 20150721, end: 20151102
  3. EXEMESTANE. [Concomitant]
     Active Substance: EXEMESTANE
     Indication: BREAST CANCER METASTATIC
     Dosage: 25 MG, QD
     Route: 048
     Dates: start: 20150408, end: 20151102

REACTIONS (21)
  - Lung infiltration malignant [Not Recovered/Not Resolved]
  - Pyrexia [Recovered/Resolved]
  - Oedema peripheral [Recovered/Resolved]
  - Dyspnoea [Recovering/Resolving]
  - Pyrexia [Recovered/Resolved]
  - Fatigue [Recovering/Resolving]
  - Staphylococcal infection [Recovered/Resolved]
  - Purulence [Unknown]
  - Anuria [Not Recovered/Not Resolved]
  - Gingival bleeding [Recovered/Resolved]
  - Pleural effusion [Recovered/Resolved]
  - Malignant neoplasm progression [Fatal]
  - Acute hepatic failure [Not Recovered/Not Resolved]
  - Hypochromic anaemia [Recovered/Resolved]
  - Device related infection [Recovered/Resolved]
  - Jaundice [Not Recovered/Not Resolved]
  - Epistaxis [Recovered/Resolved]
  - General physical health deterioration [Recovered/Resolved]
  - Respiratory distress [Recovering/Resolving]
  - C-reactive protein increased [Unknown]
  - Acute kidney injury [Not Recovered/Not Resolved]

NARRATIVE: CASE EVENT DATE: 20150505
